FAERS Safety Report 8285281-9 (Version None)
Quarter: 2012Q2

REPORT INFORMATION
  Report Type: 
  Country: None (occurrence: None)
  Receive Date: 20120413
  Receipt Date: 20120329
  Transmission Date: 20120825
  Serious: Yes (Other)
  Sender: FDA-Public Use
  Company Number: CHPA2012US002224

PATIENT
  Age: 65 Year
  Sex: Female

DRUGS (3)
  1. EXCEDRIN EXTRA STRENGTH TABLETS [Suspect]
     Indication: SINUS HEADACHE
     Dosage: 2 DF, QD PRN
     Route: 048
     Dates: end: 20120201
  2. SUDAFED 12 HOUR [Concomitant]
     Dosage: UNK, PRN
     Dates: end: 20120201
  3. IBUPROFEN [Concomitant]
     Dosage: UNK, PRN
     Dates: start: 20120201

REACTIONS (8)
  - FREQUENT BOWEL MOVEMENTS [None]
  - MUCOUS STOOLS [None]
  - PRODUCTIVE COUGH [None]
  - RECTAL CANCER [None]
  - WRONG TECHNIQUE IN DRUG USAGE PROCESS [None]
  - HAEMOPTYSIS [None]
  - BRONCHITIS [None]
  - LUNG NEOPLASM MALIGNANT [None]
